FAERS Safety Report 23416320 (Version 1)
Quarter: 2024Q1

REPORT INFORMATION
  Report Type: Spontaneous
  Country: None (occurrence: CN)
  Receive Date: 20240118
  Receipt Date: 20240118
  Transmission Date: 20240410
  Serious: Yes (Hospitalization)
  Sender: FDA-Public Use
  Company Number: CN-Jiangsu Hansoh Pharmaceutical Co., Ltd-2151485

PATIENT
  Age: 60 Year
  Sex: Male

DRUGS (3)
  1. GEMCITABINE [Suspect]
     Active Substance: GEMCITABINE
     Indication: Neoplasm
     Route: 041
     Dates: start: 20231223, end: 20231223
  2. SINTILIMAB [Suspect]
     Active Substance: SINTILIMAB
     Route: 041
     Dates: start: 20231223, end: 20231223
  3. CISPLATIN [Suspect]
     Active Substance: CISPLATIN
     Route: 041
     Dates: start: 20231223, end: 20231225

REACTIONS (3)
  - Drug eruption [Recovering/Resolving]
  - Psoriasis [Recovering/Resolving]
  - Off label use [None]

NARRATIVE: CASE EVENT DATE: 20231223
